FAERS Safety Report 6367750-1 (Version None)
Quarter: 2009Q3

REPORT INFORMATION
  Report Type: 
  Country: None (occurrence: None)
  Receive Date: 20090921
  Receipt Date: 20090914
  Transmission Date: 20100115
  Serious: Yes (Hospitalization)
  Sender: FDA-Public Use
  Company Number: FR-TEVA-209651ISR

PATIENT
  Age: 53 Year
  Sex: Male

DRUGS (2)
  1. PREDNISONE [Suspect]
     Indication: VASCULITIS
  2. METHYLPREDNISOLONE [Suspect]
     Indication: VASCULITIS

REACTIONS (1)
  - STRONGYLOIDIASIS [None]
